FAERS Safety Report 8691059 (Version 2)
Quarter: 2014Q2

REPORT INFORMATION
  Report Type: Report from Study
  Country: CA (occurrence: CA)
  Receive Date: 20120730
  Receipt Date: 20140523
  Transmission Date: 20141212
  Serious: Yes (Other)
  Sender: FDA-Public Use
  Company Number: CA-JNJFOC-20120712237

PATIENT
  Age: 39 Year
  Sex: Female

DRUGS (2)
  1. REMICADE [Suspect]
     Indication: CROHN^S DISEASE
     Route: 042
     Dates: start: 20110526
  2. IMURAN [Concomitant]
     Dosage: 2 TABLETS ONCE DAILY
     Route: 065
     Dates: start: 20111015

REACTIONS (3)
  - VIIth nerve paralysis [Recovered/Resolved]
  - Herpes zoster [Unknown]
  - Conjunctivitis [Unknown]
